FAERS Safety Report 4426354-8 (Version None)
Quarter: 2004Q3

REPORT INFORMATION
  Report Type: 
  Country: None (occurrence: None)
  Receive Date: 20040811
  Receipt Date: 20040727
  Transmission Date: 20050211
  Serious: Yes (Hospitalization)
  Sender: FDA-Public Use
  Company Number: GBS040715318

PATIENT
  Age: 12 Year
  Sex: Female
  Weight: 25 kg

DRUGS (11)
  1. CEFTAZIDIME PENTAHYDRATE [Suspect]
     Indication: CYSTIC FIBROSIS
     Dosage: 150 MG/KG/DAY  DAY
     Dates: start: 19990207, end: 19990220
  2. KETOVITE [Concomitant]
  3. CISAPRIDE [Concomitant]
  4. ALBUTEROL SULFATE [Concomitant]
  5. FLUTICASONE PROPIONATE [Concomitant]
  6. CREON [Concomitant]
  7. TOBRAMYCIN [Concomitant]
  8. COLOMYCIN (COLISTIN) [Concomitant]
  9. COLISTIN SULFATE [Concomitant]
  10. PANCREATIN TRIPLE STRENGTH CAP [Concomitant]
  11. TOCOPHEROL CONCENTRATE CAP [Concomitant]

REACTIONS (6)
  - BONE MARROW DEPRESSION [None]
  - BRONCHOSPASM [None]
  - CHEST DISCOMFORT [None]
  - COUGH [None]
  - DYSPNOEA [None]
  - PYREXIA [None]
